FAERS Safety Report 6298228-1 (Version None)
Quarter: 2009Q3

REPORT INFORMATION
  Report Type: 
  Country: None (occurrence: None)
  Receive Date: 20090805
  Receipt Date: 20090803
  Transmission Date: 20100115
  Serious: Yes (Disabling, Other)
  Sender: FDA-Public Use
  Company Number: DE-AVENTIS-200911668DE

PATIENT
  Age: 72 Year
  Sex: Male
  Weight: 110 kg

DRUGS (4)
  1. LANTUS [Suspect]
     Dosage: DOSE: 30IU
     Route: 058
     Dates: start: 20080318, end: 20090629
  2. METFORMIN [Concomitant]
     Indication: DRUG USE FOR UNKNOWN INDICATION
     Route: 048
  3. PROVAS [Concomitant]
     Indication: DRUG USE FOR UNKNOWN INDICATION
     Route: 048
  4. DILTIAZEM [Concomitant]
     Indication: DRUG USE FOR UNKNOWN INDICATION
     Route: 048

REACTIONS (1)
  - BLADDER NEOPLASM [None]
